FAERS Safety Report 12969975 (Version 1)
Quarter: 2016Q4

REPORT INFORMATION
  Report Type: Spontaneous
  Country: US (occurrence: US)
  Receive Date: 20161123
  Receipt Date: 20161123
  Transmission Date: 20170207
  Serious: Yes (Hospitalization)
  Sender: FDA-Public Use
  Company Number: US-JNJFOC-20150313795

PATIENT
  Age: 72 Year
  Sex: Male

DRUGS (10)
  1. SALBUTAMOL SULFATE [Concomitant]
     Active Substance: ALBUTEROL SULFATE
  2. ALLOPURINOL. [Concomitant]
     Active Substance: ALLOPURINOL
  3. TRAMADOL. [Concomitant]
     Active Substance: TRAMADOL
  4. PLAVIX [Concomitant]
     Active Substance: CLOPIDOGREL BISULFATE
  5. IMBRUVICA [Suspect]
     Active Substance: IBRUTINIB
     Indication: MANTLE CELL LYMPHOMA
     Route: 048
     Dates: start: 20150225
  6. SYMBICORT [Concomitant]
     Active Substance: BUDESONIDE\FORMOTEROL FUMARATE DIHYDRATE
  7. DIGOXIN. [Concomitant]
     Active Substance: DIGOXIN
  8. ACYCLOVIR. [Concomitant]
     Active Substance: ACYCLOVIR
  9. SIMVASTATIN. [Concomitant]
     Active Substance: SIMVASTATIN
  10. COREG [Concomitant]
     Active Substance: CARVEDILOL

REACTIONS (2)
  - Blood calcium increased [Unknown]
  - Diarrhoea [Recovered/Resolved]

NARRATIVE: CASE EVENT DATE: 201503
